FAERS Safety Report 20057026 (Version 1)
Quarter: 2021Q4

REPORT INFORMATION
  Report Type: Spontaneous
  Country: SE (occurrence: SE)
  Receive Date: 20211111
  Receipt Date: 20211111
  Transmission Date: 20220303
  Serious: Yes (Hospitalization)
  Sender: FDA-Public Use
  Company Number: None

PATIENT
  Age: 42 Year
  Sex: Male

DRUGS (4)
  1. DIAZEPAM [Suspect]
     Active Substance: DIAZEPAM
     Route: 065
  2. BACLOFEN [Suspect]
     Active Substance: BACLOFEN
     Route: 065
  3. BUPIVACAINE [Concomitant]
     Active Substance: BUPIVACAINE
  4. MORPHINE [Concomitant]
     Active Substance: MORPHINE

REACTIONS (3)
  - Toxicity to various agents [Recovering/Resolving]
  - Accidental overdose [Recovering/Resolving]
  - Loss of consciousness [Recovering/Resolving]

NARRATIVE: CASE EVENT DATE: 20211001
